FAERS Safety Report 24175801 (Version 5)
Quarter: 2025Q2

REPORT INFORMATION
  Report Type: Spontaneous
  Country: US (occurrence: US)
  Receive Date: 20240805
  Receipt Date: 20250528
  Transmission Date: 20250716
  Serious: No
  Sender: SANOFI AVENTIS
  Company Number: US-SA-SAC20240730000511

PATIENT
  Age: 19 Year
  Sex: Male

DRUGS (3)
  1. DUPIXENT [Suspect]
     Active Substance: DUPILUMAB
     Indication: Eczema
     Route: 058
     Dates: start: 202312, end: 202312
  2. DUPIXENT [Suspect]
     Active Substance: DUPILUMAB
     Indication: Dermatitis allergic
     Dosage: 300 MG, QOW
     Route: 058
     Dates: start: 202312
  3. DUPIXENT [Suspect]
     Active Substance: DUPILUMAB
     Indication: Dermatitis atopic

REACTIONS (10)
  - Pain [Unknown]
  - Injection site hypoaesthesia [Unknown]
  - Dry skin [Unknown]
  - Rebound eczema [Recovering/Resolving]
  - Inappropriate schedule of product administration [Recovering/Resolving]
  - Injection site pain [Unknown]
  - Injection site swelling [Unknown]
  - Dermatitis allergic [Unknown]
  - Condition aggravated [Unknown]
  - Lack of injection site rotation [Unknown]

NARRATIVE: CASE EVENT DATE: 20240101
